FAERS Safety Report 8570109-X (Version None)
Quarter: 2012Q3

REPORT INFORMATION
  Report Type: 
  Country: None (occurrence: None)
  Receive Date: 20120803
  Receipt Date: 20120225
  Transmission Date: 20120928
  Serious: No
  Sender: FDA-Public Use
  Company Number: US-ABBOTT-12P-163-0908917-00

PATIENT
  Sex: Female

DRUGS (1)
  1. NIASPAN [Suspect]
     Indication: BLOOD CHOLESTEROL INCREASED
     Dates: start: 20120211

REACTIONS (5)
  - HEADACHE [None]
  - NAUSEA [None]
  - VOMITING [None]
  - RETCHING [None]
  - ABDOMINAL TENDERNESS [None]
